FAERS Safety Report 11694087 (Version 1)
Quarter: 2015Q4

REPORT INFORMATION
  Report Type: Spontaneous
  Country: GB (occurrence: GB)
  Receive Date: 20151103
  Receipt Date: 20151103
  Transmission Date: 20160304
  Serious: Yes (Hospitalization)
  Sender: FDA-Public Use
  Company Number: PHHY2015GB138919

PATIENT
  Age: 60 Year
  Sex: Male
  Weight: 101.6 kg

DRUGS (4)
  1. DEXAMETHASONE. [Suspect]
     Active Substance: DEXAMETHASONE
     Indication: PLASMA CELL MYELOMA
     Dosage: 40 MG, QW
     Route: 048
     Dates: start: 20140117, end: 20150925
  2. POMALIDOMIDE [Suspect]
     Active Substance: POMALIDOMIDE
     Indication: PLASMA CELL MYELOMA
     Dosage: 4 MG, QD
     Route: 048
     Dates: start: 20140117, end: 20150825
  3. CLARITHROMYCIN. [Suspect]
     Active Substance: CLARITHROMYCIN
     Indication: ADJUVANT THERAPY
     Dosage: 500 MG, BID
     Route: 048
     Dates: start: 20150702, end: 20150825
  4. SODIUM CLODRONATE [Concomitant]
     Active Substance: CLODRONIC ACID
     Indication: PRODUCT USED FOR UNKNOWN INDICATION
     Route: 065

REACTIONS (5)
  - Confusional state [Unknown]
  - Encephalitis [Recovering/Resolving]
  - Complex partial seizures [Unknown]
  - Hallucination [Unknown]
  - Paranoia [Unknown]

NARRATIVE: CASE EVENT DATE: 20150820
